FAERS Safety Report 21576338 (Version 2)
Quarter: 2022Q4

REPORT INFORMATION
  Report Type: Report from Study
  Country: DE (occurrence: DE)
  Receive Date: 20221110
  Receipt Date: 20221125
  Transmission Date: 20230112
  Serious: No
  Sender: FDA-Public Use
  Company Number: DE-BRISTOL-MYERS SQUIBB COMPANY-2022-132696

PATIENT
  Age: 25 Year
  Sex: Male
  Weight: 50 kg

DRUGS (1)
  1. OZANIMOD [Suspect]
     Active Substance: OZANIMOD
     Indication: Multiple sclerosis
     Route: 048
     Dates: start: 20210414, end: 20221026

REACTIONS (1)
  - Multiple sclerosis [Recovering/Resolving]

NARRATIVE: CASE EVENT DATE: 20221025
